FAERS Safety Report 13781026 (Version 1)
Quarter: 2017Q3

REPORT INFORMATION
  Report Type: Spontaneous
  Country: US (occurrence: US)
  Receive Date: 20170722
  Receipt Date: 20170722
  Transmission Date: 20171127
  Serious: Yes (Other)
  Sender: FDA-Public Use
  Company Number: None

PATIENT
  Age: 39 Year
  Sex: Female
  Weight: 56.25 kg

DRUGS (5)
  1. PORTIA [Concomitant]
     Active Substance: ETHINYL ESTRADIOL\LEVONORGESTREL
  2. CALCIUM [Concomitant]
     Active Substance: CALCIUM
  3. ZANTAC [Concomitant]
     Active Substance: RANITIDINE HYDROCHLORIDE
  4. FLONASE [Concomitant]
     Active Substance: FLUTICASONE PROPIONATE
  5. LEVOFLOXACIN. [Suspect]
     Active Substance: LEVOFLOXACIN
     Indication: PNEUMONIA
     Dosage: ?          OTHER STRENGTH:MG;QUANTITY:10 TABLET(S);?
     Route: 048
     Dates: start: 20170717, end: 20170720

REACTIONS (11)
  - Pain [None]
  - Musculoskeletal pain [None]
  - Insomnia [None]
  - Pain in extremity [None]
  - Back pain [None]
  - Nervousness [None]
  - Arthralgia [None]
  - Myalgia [None]
  - Tendon pain [None]
  - Musculoskeletal stiffness [None]
  - Hypoaesthesia [None]

NARRATIVE: CASE EVENT DATE: 20170720
